FAERS Safety Report 10140056 (Version 2)
Quarter: 2014Q2

REPORT INFORMATION
  Report Type: Report from Study
  Country: CA (occurrence: CA)
  Receive Date: 20140429
  Receipt Date: 20140429
  Transmission Date: 20141212
  Serious: Yes (Other)
  Sender: FDA-Public Use
  Company Number: PHHY2013CA127375

PATIENT
  Age: 64 Year
  Sex: Female

DRUGS (6)
  1. SANDOSTATIN LAR [Suspect]
     Indication: NELSON^S SYNDROME
     Dosage: 20 MG, EVERY 4 WEEKS
     Route: 030
     Dates: start: 20131031
  2. SANDOSTATIN LAR [Suspect]
     Dosage: 20 MG, EVERY 4 WEEKS
     Route: 030
     Dates: start: 20131130
  3. CLARITHROMYCIN [Suspect]
     Dosage: 500 MG TWICE PER DAY
  4. METOPROLOL [Concomitant]
     Dosage: UNK UKN, UNK
  5. CORTISOL [Concomitant]
     Dosage: UNK UKN, UNK
  6. CORTISOL [Concomitant]
     Dosage: 50 MG PER DAY

REACTIONS (12)
  - Presyncope [Unknown]
  - Blood pressure systolic increased [Unknown]
  - Cough [Unknown]
  - Nasopharyngitis [Unknown]
  - Nasal congestion [Unknown]
  - Facial pain [Unknown]
  - Tongue blistering [Unknown]
  - Injection site pain [Recovering/Resolving]
  - Heart rate decreased [Unknown]
  - Dizziness [Not Recovered/Not Resolved]
  - Dizziness postural [Not Recovered/Not Resolved]
  - Diarrhoea [Unknown]
